FAERS Safety Report 20737188 (Version 2)
Quarter: 2022Q2

REPORT INFORMATION
  Report Type: Spontaneous
  Country: US (occurrence: US)
  Receive Date: 20220421
  Receipt Date: 20220527
  Transmission Date: 20220721
  Serious: Yes (Other)
  Sender: FDA-Public Use
  Company Number: US-BAUSCH-BL-2022-009273

PATIENT
  Age: 16 Year
  Sex: Male
  Weight: 71.278 kg

DRUGS (13)
  1. SOLODYN [Suspect]
     Active Substance: MINOCYCLINE HYDROCHLORIDE
     Indication: Acne
     Route: 065
     Dates: start: 2008, end: 2010
  2. SOLODYN [Suspect]
     Active Substance: MINOCYCLINE HYDROCHLORIDE
     Dosage: CHANGED BACK TO SOLODYN AND PRIOR TO THAT WAS ON DORYX
     Route: 065
     Dates: start: 201109
  3. PREDNISONE [Concomitant]
     Active Substance: PREDNISONE
     Indication: Autoimmune hepatitis
     Dosage: 10MG 3 TIMES DAILY FOR 3 WEEKS
     Route: 065
  4. PREDNISONE [Concomitant]
     Active Substance: PREDNISONE
     Dosage: DECREASE TO 2 TIMES DAILY
     Route: 065
  5. PREDNISONE [Concomitant]
     Active Substance: PREDNISONE
     Route: 065
     Dates: end: 201205
  6. TYLENOL [Concomitant]
     Active Substance: ACETAMINOPHEN
  7. DORYX [Concomitant]
     Active Substance: DOXYCYCLINE HYCLATE
     Indication: Acne
     Route: 065
     Dates: start: 2010
  8. PLEXION [Concomitant]
     Active Substance: SULFACETAMIDE SODIUM\SULFUR
     Indication: Product used for unknown indication
     Dosage: CLEANSING CLOTHS TWICE DAILY TO FACE, CHEST, AND BACK
     Route: 065
  9. DUAC [Concomitant]
     Active Substance: BENZOYL PEROXIDE\CLINDAMYCIN PHOSPHATE
     Indication: Product used for unknown indication
     Route: 065
  10. BENZACLIN [Concomitant]
     Active Substance: BENZOYL PEROXIDE\CLINDAMYCIN PHOSPHATE
     Indication: Product used for unknown indication
     Route: 065
  11. ZIANA [Concomitant]
     Active Substance: CLINDAMYCIN PHOSPHATE\TRETINOIN
     Indication: Product used for unknown indication
     Route: 065
  12. TAZORAC [Concomitant]
     Active Substance: TAZAROTENE
     Indication: Product used for unknown indication
     Route: 065
  13. BENZEFOAM [Concomitant]
     Active Substance: BENZOYL PEROXIDE
     Indication: Acne

REACTIONS (16)
  - Autoimmune hepatitis [Unknown]
  - Jaundice [Unknown]
  - Acne [Not Recovered/Not Resolved]
  - Malaise [Recovered/Resolved]
  - Headache [Unknown]
  - Decreased appetite [Recovered/Resolved]
  - Dry throat [Unknown]
  - Lymphadenopathy [Unknown]
  - Cough [Recovered/Resolved]
  - Ear pain [Unknown]
  - Productive cough [Unknown]
  - Ear infection [Unknown]
  - Abnormal faeces [Unknown]
  - Folliculitis [Unknown]
  - Condition aggravated [Not Recovered/Not Resolved]
  - Bowel movement irregularity [Unknown]
